FAERS Safety Report 24337727 (Version 1)
Quarter: 2024Q3

REPORT INFORMATION
  Report Type: Spontaneous
  Country: US (occurrence: US)
  Receive Date: 20240919
  Receipt Date: 20240919
  Transmission Date: 20241017
  Serious: Yes (Other)
  Sender: ALEMBIC
  Company Number: US-ALEMBIC PHARMACUETICALS LIMITED-2024SCAL001320

PATIENT

DRUGS (10)
  1. CARBIDOPA AND LEVODOPA [Suspect]
     Active Substance: CARBIDOPA\LEVODOPA
     Indication: Osmotic demyelination syndrome
     Dosage: 25/100 MG, TID (ONE TABLET THREE TIMES DAILY)
     Route: 065
  2. CARBIDOPA AND LEVODOPA [Suspect]
     Active Substance: CARBIDOPA\LEVODOPA
     Dosage: 25/100 MG, TID (1.5 TABLETS THREE TIMES DAILY)
     Route: 065
  3. PRAMIPEXOLE DIHYDROCHLORIDE [Suspect]
     Active Substance: PRAMIPEXOLE DIHYDROCHLORIDE
     Indication: Osmotic demyelination syndrome
     Dosage: 0.5 MG, TID
     Route: 065
  4. PRAMIPEXOLE DIHYDROCHLORIDE [Suspect]
     Active Substance: PRAMIPEXOLE DIHYDROCHLORIDE
     Dosage: 1 MG, TID
     Route: 065
  5. AMANTADINE [Concomitant]
     Active Substance: AMANTADINE
     Indication: Pseudobulbar palsy
     Dosage: 100 MG, BID
     Route: 065
  6. AMANTADINE [Concomitant]
     Active Substance: AMANTADINE
     Indication: Reduced facial expression
  7. TRIHEXYPHENIDYL [Concomitant]
     Active Substance: TRIHEXYPHENIDYL
     Indication: Pseudobulbar palsy
     Dosage: 2 MG, TID
     Route: 065
  8. TRIHEXYPHENIDYL [Concomitant]
     Active Substance: TRIHEXYPHENIDYL
     Indication: Reduced facial expression
  9. LAMOTRIGINE [Concomitant]
     Active Substance: LAMOTRIGINE
     Indication: Mood altered
     Dosage: UNK
     Route: 065
  10. ROTIGOTINE [Concomitant]
     Active Substance: ROTIGOTINE
     Indication: Dysarthria
     Dosage: 1.5 MG, QD
     Route: 065

REACTIONS (5)
  - Suicide attempt [Unknown]
  - Drug ineffective [Unknown]
  - Intentional overdose [Unknown]
  - Sexually inappropriate behaviour [Unknown]
  - Compulsive shopping [Unknown]
